FAERS Safety Report 25411274 (Version 1)
Quarter: 2025Q2

REPORT INFORMATION
  Report Type: Spontaneous
  Country: US (occurrence: US)
  Receive Date: 20250609
  Receipt Date: 20250609
  Transmission Date: 20250716
  Serious: No
  Sender: ELI LILLY AND COMPANY
  Company Number: US-ELI_LILLY_AND_COMPANY-US202506004695

PATIENT
  Age: 46 Year
  Sex: Female

DRUGS (8)
  1. MOUNJARO [Suspect]
     Active Substance: TIRZEPATIDE
     Indication: Low density lipoprotein increased
     Route: 058
  2. MOUNJARO [Suspect]
     Active Substance: TIRZEPATIDE
     Indication: Low density lipoprotein increased
     Route: 058
  3. MOUNJARO [Suspect]
     Active Substance: TIRZEPATIDE
     Indication: Low density lipoprotein increased
     Route: 058
  4. MOUNJARO [Suspect]
     Active Substance: TIRZEPATIDE
     Indication: Low density lipoprotein increased
     Route: 058
  5. MOUNJARO [Suspect]
     Active Substance: TIRZEPATIDE
     Indication: Body mass index increased
  6. MOUNJARO [Suspect]
     Active Substance: TIRZEPATIDE
     Indication: Body mass index increased
  7. MOUNJARO [Suspect]
     Active Substance: TIRZEPATIDE
     Indication: Body mass index increased
  8. MOUNJARO [Suspect]
     Active Substance: TIRZEPATIDE
     Indication: Body mass index increased

REACTIONS (2)
  - Accidental underdose [Unknown]
  - Off label use [Unknown]
